FAERS Safety Report 9592429 (Version 1)
Quarter: 2013Q3

REPORT INFORMATION
  Report Type: Spontaneous
  Country: US (occurrence: None)
  Receive Date: 20130927
  Receipt Date: 20130927
  Transmission Date: 20140515
  Serious: Yes (Hospitalization)
  Sender: FDA-Public Use
  Company Number: RB-55592-2013

PATIENT
  Age: 31 Year
  Sex: Male

DRUGS (1)
  1. SUBOXONE [Suspect]
     Indication: DRUG DEPENDENCE
     Dosage: 8 MG SUBOXONE FILM SUBLINGUAL)
     Dates: start: 20130615, end: 20130615

REACTIONS (2)
  - Off label use [None]
  - Drug withdrawal syndrome [None]
